FAERS Safety Report 5712203-4 (Version None)
Quarter: 2008Q2

REPORT INFORMATION
  Report Type: 
  Country: None (occurrence: None)
  Receive Date: 20080422
  Receipt Date: 20080409
  Transmission Date: 20081010
  Serious: Yes (Other)
  Sender: FDA-Public Use
  Company Number: FR-BAYER-200812316GPV

PATIENT
  Age: 73 Year
  Sex: Male

DRUGS (4)
  1. MABCAMPATH [Suspect]
     Indication: CHRONIC LYMPHOCYTIC LEUKAEMIA
     Route: 065
     Dates: start: 20071001, end: 20080115
  2. BACTRIM [Concomitant]
     Indication: ANTIBIOTIC PROPHYLAXIS
     Route: 065
     Dates: end: 20080122
  3. TRIFLUCAN [Concomitant]
     Indication: ANTIFUNGAL PROPHYLAXIS
     Route: 065
     Dates: end: 20080101
  4. ZELITREX [Concomitant]
     Indication: ANTIVIRAL PROPHYLAXIS

REACTIONS (4)
  - GENERALISED OEDEMA [None]
  - LEUKOPENIA [None]
  - RASH MORBILLIFORM [None]
  - WEIGHT INCREASED [None]
